FAERS Safety Report 14122158 (Version 1)
Quarter: 2017Q4

REPORT INFORMATION
  Report Type: Spontaneous
  Country: US (occurrence: US)
  Receive Date: 20171024
  Receipt Date: 20171024
  Transmission Date: 20180321
  Serious: No
  Sender: FDA-Public Use
  Company Number: US-BAYER-2017-202611

PATIENT
  Sex: Female

DRUGS (1)
  1. ESTRADIOL HEMIHYDRATE [Suspect]
     Active Substance: ESTRADIOL HEMIHYDRATE
     Dosage: 0.1 MG, QD
     Route: 062
     Dates: start: 2014

REACTIONS (4)
  - Crying [None]
  - Device used for unapproved schedule [None]
  - Feeling abnormal [Unknown]
  - Product adhesion issue [None]
